FAERS Safety Report 10269841 (Version 2)
Quarter: 2014Q3

REPORT INFORMATION
  Report Type: Report from Study
  Country: JP (occurrence: JP)
  Receive Date: 20140701
  Receipt Date: 20140902
  Transmission Date: 20150326
  Serious: Yes (Disabling)
  Sender: FDA-Public Use
  Company Number: JP-JNJFOC-20140618596

PATIENT
  Age: 81 Year
  Sex: Male

DRUGS (16)
  1. SUNRYTHM [Concomitant]
     Active Substance: PILSICAINIDE HYDROCHLORIDE
     Route: 048
  2. SOLETON [Concomitant]
     Active Substance: ZALTOPROFEN
     Route: 048
  3. SELBEX [Concomitant]
     Active Substance: TEPRENONE
     Route: 048
  4. MUCOSTA [Concomitant]
     Active Substance: REBAMIPIDE
     Route: 048
  5. SYMMETREL [Concomitant]
     Active Substance: AMANTADINE HYDROCHLORIDE
     Route: 048
  6. SIGMART [Concomitant]
     Active Substance: NICORANDIL
     Route: 048
  7. WARFARIN [Suspect]
     Active Substance: WARFARIN
     Indication: CEREBRAL ARTERY EMBOLISM
     Route: 048
     Dates: start: 20131105
  8. WARFARIN [Suspect]
     Active Substance: WARFARIN
     Indication: CEREBRAL ARTERY EMBOLISM
     Route: 048
     Dates: start: 20131026
  9. KEPPRA [Concomitant]
     Active Substance: LEVETIRACETAM
     Route: 048
     Dates: start: 20131026
  10. XARELTO [Suspect]
     Active Substance: RIVAROXABAN
     Indication: CEREBROVASCULAR ACCIDENT PROPHYLAXIS
     Route: 048
     Dates: start: 20121022, end: 20131024
  11. XARELTO [Suspect]
     Active Substance: RIVAROXABAN
     Indication: THROMBOSIS PROPHYLAXIS
     Route: 048
     Dates: start: 20121022, end: 20131024
  12. GASTER [Concomitant]
     Active Substance: FAMOTIDINE
     Route: 048
  13. BAYASPIRIN [Concomitant]
     Active Substance: ASPIRIN
     Route: 048
  14. WARFARIN [Suspect]
     Active Substance: WARFARIN
     Indication: CEREBRAL ARTERY EMBOLISM
     Route: 048
     Dates: start: 20131108
  15. WARFARIN [Suspect]
     Active Substance: WARFARIN
     Indication: CEREBRAL ARTERY EMBOLISM
     Route: 048
     Dates: start: 20131031
  16. EXCEGRAN [Concomitant]
     Active Substance: ZONISAMIDE
     Route: 048

REACTIONS (3)
  - Cerebral artery embolism [Not Recovered/Not Resolved]
  - International normalised ratio abnormal [Not Recovered/Not Resolved]
  - Prothrombin time abnormal [Not Recovered/Not Resolved]

NARRATIVE: CASE EVENT DATE: 20131023
